FAERS Safety Report 10077615 (Version 2)
Quarter: 2014Q2

REPORT INFORMATION
  Report Type: Spontaneous
  Country: US (occurrence: US)
  Receive Date: 20140414
  Receipt Date: 20140414
  Transmission Date: 20141212
  Serious: No
  Sender: FDA-Public Use
  Company Number: US-BANPHARM-20131982

PATIENT
  Age: 74 Year
  Sex: Female
  Weight: 72.57 kg

DRUGS (14)
  1. ALEVE LIQUID GELS 220 MG [Suspect]
     Indication: BACK PAIN
     Dosage: 2 DF, TID,
     Route: 048
     Dates: start: 20131206
  2. ADVAIR [Concomitant]
  3. NASACORT [Concomitant]
  4. ALOCLAIR [Concomitant]
  5. PRILOSEC [Concomitant]
  6. NEURONTIN [Concomitant]
  7. NORCO [Concomitant]
  8. KIRKLIN MATURE MULTI-VITAMIN [Concomitant]
  9. B12 COMPLEX [Concomitant]
  10. FISH OIL [Concomitant]
  11. MAGNESIUM [Concomitant]
  12. ZINC [Concomitant]
  13. AMBIEN [Concomitant]
  14. GENERIC CALCIUM [Concomitant]

REACTIONS (1)
  - Pollakiuria [Not Recovered/Not Resolved]
